FAERS Safety Report 6169375-X (Version None)
Quarter: 2009Q2

REPORT INFORMATION
  Report Type: 
  Country: None (occurrence: None)
  Receive Date: 20090424
  Receipt Date: 20090415
  Transmission Date: 20091009
  Serious: Yes (Hospitalization)
  Sender: FDA-Public Use
  Company Number: 2009SP008372

PATIENT
  Age: 9 Year
  Sex: Male
  Weight: 33 kg

DRUGS (6)
  1. DESLORATADINE [Suspect]
     Indication: OROPHARYNGEAL PAIN
     Dosage: 1.25 MG;QPM;PO
     Route: 048
     Dates: start: 20090309, end: 20090312
  2. DESLORATADINE [Suspect]
     Indication: PYREXIA
     Dosage: 1.25 MG;QPM;PO
     Route: 048
     Dates: start: 20090309, end: 20090312
  3. ADVIL [Suspect]
     Indication: OROPHARYNGEAL PAIN
     Dosage: 1 DF;TID;PO
     Route: 048
     Dates: start: 20090309, end: 20090312
  4. ADVIL [Suspect]
     Indication: PYREXIA
     Dosage: 1 DF;TID;PO
     Route: 048
     Dates: start: 20090309, end: 20090312
  5. ACETAMINOPHEN [Suspect]
     Indication: OROPHARYNGEAL PAIN
     Dosage: 500 MG;BID;PO
     Route: 048
     Dates: start: 20090309, end: 20090312
  6. ACETAMINOPHEN [Suspect]
     Indication: PYREXIA
     Dosage: 500 MG;BID;PO
     Route: 048
     Dates: start: 20090309, end: 20090312

REACTIONS (7)
  - BLOOD SODIUM INCREASED [None]
  - BLOOD UREA DECREASED [None]
  - CONDITION AGGRAVATED [None]
  - HAEMOGLOBIN DECREASED [None]
  - INFECTIOUS MONONUCLEOSIS [None]
  - LYMPHADENITIS [None]
  - MEAN CELL VOLUME DECREASED [None]
